FAERS Safety Report 24452116 (Version 1)
Quarter: 2024Q4

REPORT INFORMATION
  Report Type: Spontaneous
  Country: JP (occurrence: JP)
  Receive Date: 20241017
  Receipt Date: 20241017
  Transmission Date: 20250114
  Serious: Yes (Death, Life-Threatening, Other)
  Sender: DR REDDYS
  Company Number: JP-RDY-LIT/JPN/24/0015353

PATIENT
  Sex: Female

DRUGS (2)
  1. AZACITIDINE [Suspect]
     Active Substance: AZACITIDINE
     Indication: Trisomy 21
     Dosage: CYCLIC TREATMENT AZACITIDINE 75 MG/M2
  2. AZACITIDINE [Suspect]
     Active Substance: AZACITIDINE
     Indication: Myeloid leukaemia

REACTIONS (5)
  - Acute myeloid leukaemia [Fatal]
  - Drug ineffective for unapproved indication [Fatal]
  - Thrombocytopenia [Unknown]
  - Anaemia [Unknown]
  - Liver disorder [Unknown]
